FAERS Safety Report 23995021 (Version 1)
Quarter: 2024Q2

REPORT INFORMATION
  Report Type: Spontaneous
  Country: US (occurrence: US)
  Receive Date: 20240620
  Receipt Date: 20240620
  Transmission Date: 20240716
  Serious: No
  Sender: FDA-Public Use
  Company Number: US-ROCHE-10000000166

PATIENT

DRUGS (1)
  1. OCREVUS [Suspect]
     Active Substance: OCRELIZUMAB
     Indication: Product used for unknown indication
     Dosage: 30 MG / 1 ML
     Route: 065

REACTIONS (4)
  - Feeling abnormal [Unknown]
  - Infusion related reaction [Unknown]
  - Visual impairment [Unknown]
  - B-lymphocyte count decreased [Unknown]
